FAERS Safety Report 8110541-1 (Version None)
Quarter: 2012Q1

REPORT INFORMATION
  Report Type: 
  Country: None (occurrence: None)
  Receive Date: 20120203
  Receipt Date: 20120201
  Transmission Date: 20120608
  Serious: Yes (Death, Hospitalization)
  Sender: FDA-Public Use
  Company Number: SE-BRISTOL-MYERS SQUIBB COMPANY-14265821

PATIENT
  Age: 61 Year
  Sex: Female

DRUGS (11)
  1. ZOLPIDEM TARTRATE [Concomitant]
     Dosage: FILM COATED TABS
  2. ASPIRIN [Concomitant]
     Dosage: TABS
  3. SIMVASTATIN [Concomitant]
  4. ORUDIS [Suspect]
  5. SALURES [Concomitant]
     Dosage: TABS
  6. PRIMOLUT-NOR [Concomitant]
     Dosage: PROLONGED RELEASE TABS
  7. METOPROLOL SUCCINATE [Concomitant]
     Dosage: PROLONGED RELEASE TABLET
  8. DIVIGEL [Concomitant]
     Dosage: GEL IN SINGLE DOSE CONTAINER
  9. OMEPRAZOLE [Concomitant]
  10. PLENDIL [Concomitant]
     Dosage: PROL RELEASE TABS
  11. ORENCIA [Suspect]
     Indication: RHEUMATOID ARTHRITIS
     Route: 042
     Dates: start: 20071101, end: 20080301

REACTIONS (11)
  - FUNGAL INFECTION [None]
  - ARTHRALGIA [None]
  - OROPHARYNGEAL PAIN [None]
  - PANCREATITIS [None]
  - RESPIRATORY FAILURE [None]
  - BACTERIAL INFECTION [None]
  - FATIGUE [None]
  - OROPHARYNGEAL BLISTERING [None]
  - RENAL FAILURE [None]
  - CIRCULATORY COLLAPSE [None]
  - PYREXIA [None]
